FAERS Safety Report 4835456-3 (Version None)
Quarter: 2005Q4

REPORT INFORMATION
  Report Type: 
  Country: None (occurrence: None)
  Receive Date: 20051122
  Receipt Date: 20051122
  Transmission Date: 20060501
  Serious: Yes (Disabling)
  Sender: FDA-Public Use
  Company Number: None

PATIENT
  Age: 76 Year
  Sex: Female
  Weight: 92 kg

DRUGS (8)
  1. WARFARIN [Suspect]
     Indication: ATRIAL FIBRILLATION
     Dosage: 5 MG DAILY PO
     Route: 048
     Dates: start: 20050825, end: 20050828
  2. WARFARIN [Suspect]
     Indication: THROMBOSIS PROPHYLAXIS
     Dosage: 5 MG DAILY PO
     Route: 048
     Dates: start: 20050825, end: 20050828
  3. EFUROXIME [Concomitant]
     Indication: ATRIAL FIBRILLATION
     Dosage: 100 MG BID SQ
     Route: 058
     Dates: start: 20050825, end: 20050828
  4. EFUROXIME [Concomitant]
     Indication: THROMBOSIS PROPHYLAXIS
     Dosage: 100 MG BID SQ
     Route: 058
     Dates: start: 20050825, end: 20050828
  5. DIGOXIN [Concomitant]
  6. ACIDOPHILUS [Concomitant]
  7. METOPROLOL [Concomitant]
  8. FUROSEMIDE [Concomitant]

REACTIONS (7)
  - ARTHRALGIA [None]
  - ATRIAL FIBRILLATION [None]
  - HYPOTENSION [None]
  - INTERNATIONAL NORMALISED RATIO DECREASED [None]
  - OEDEMA PERIPHERAL [None]
  - PLATELET COUNT DECREASED [None]
  - RETROPERITONEAL HAEMORRHAGE [None]
